FAERS Safety Report 4385986-6 (Version None)
Quarter: 2004Q2

REPORT INFORMATION
  Report Type: 
  Country: None (occurrence: None)
  Receive Date: 20040628
  Receipt Date: 20040624
  Transmission Date: 20050107
  Serious: Yes (Hospitalization)
  Sender: FDA-Public Use
  Company Number: IT-MERCK-0406ITA00041

PATIENT
  Age: 21 Year
  Sex: Female

DRUGS (1)
  1. NOROXIN [Suspect]
     Indication: CYSTITIS
     Route: 048
     Dates: start: 20040608, end: 20040615

REACTIONS (3)
  - CONJUNCTIVITIS [None]
  - STOMATITIS [None]
  - VULVOVAGINAL DISCOMFORT [None]
